FAERS Safety Report 25056303 (Version 4)
Quarter: 2025Q4

REPORT INFORMATION
  Report Type: Report from Study
  Country: EU (occurrence: EU)
  Receive Date: 20250310
  Receipt Date: 20251208
  Transmission Date: 20260118
  Serious: Yes (Hospitalization)
  Sender: ABBVIE
  Company Number: EU-ABBVIE-6164787

PATIENT
  Age: 45 Year
  Sex: Male

DRUGS (1)
  1. SKYRIZI [Suspect]
     Active Substance: RISANKIZUMAB-RZAA
     Indication: Crohn^s disease
     Route: 058
     Dates: start: 20241202, end: 20250601

REACTIONS (6)
  - Syncope [Not Recovered/Not Resolved]
  - Intestinal resection [Unknown]
  - Sepsis [Not Recovered/Not Resolved]
  - Unevaluable event [Unknown]
  - Renal disorder [Unknown]
  - Surgery [Unknown]

NARRATIVE: CASE EVENT DATE: 20250222
